FAERS Safety Report 18947250 (Version 1)
Quarter: 2021Q1

REPORT INFORMATION
  Report Type: Spontaneous
  Country: US (occurrence: US)
  Receive Date: 20210226
  Receipt Date: 20210226
  Transmission Date: 20210420
  Serious: No
  Sender: FDA-Public Use
  Company Number: US-ELI_LILLY_AND_COMPANY-US202102001860

PATIENT
  Age: 70 Year
  Sex: Female

DRUGS (1)
  1. RETEVMO [Suspect]
     Active Substance: SELPERCATINIB
     Indication: NEOPLASM MALIGNANT
     Dosage: 120 MG, BID
     Route: 048

REACTIONS (1)
  - Paraesthesia [Recovered/Resolved]
